FAERS Safety Report 13540224 (Version 4)
Quarter: 2017Q3

REPORT INFORMATION
  Report Type: Spontaneous
  Country: DE (occurrence: DE)
  Receive Date: 20170512
  Receipt Date: 20170811
  Transmission Date: 20171127
  Serious: Yes (Other)
  Sender: FDA-Public Use
  Company Number: PHHY2017DE069612

PATIENT
  Age: 73 Year
  Sex: Female

DRUGS (1)
  1. TASIGNA [Suspect]
     Active Substance: NILOTINIB
     Indication: CHRONIC MYELOID LEUKAEMIA
     Dosage: 300 MG, BID
     Route: 048
     Dates: start: 201203, end: 20170510

REACTIONS (4)
  - Angina pectoris [Not Recovered/Not Resolved]
  - Carotid artery stenosis [Recovered/Resolved]
  - Lipid metabolism disorder [Unknown]
  - Chest pain [Unknown]

NARRATIVE: CASE EVENT DATE: 201607
